FAERS Safety Report 7543155-2 (Version None)
Quarter: 2011Q2

REPORT INFORMATION
  Report Type: 
  Country: None (occurrence: None)
  Receive Date: 20110613
  Receipt Date: 20110530
  Transmission Date: 20111010
  Serious: Yes (Hospitalization)
  Sender: FDA-Public Use
  Company Number: PL-JNJFOC-20110600826

PATIENT
  Sex: Female
  Weight: 66 kg

DRUGS (2)
  1. REMICADE [Suspect]
     Indication: RHEUMATOID ARTHRITIS
     Route: 042
     Dates: start: 20101221
  2. REMICADE [Suspect]
     Route: 042
     Dates: start: 20101207

REACTIONS (5)
  - TACHYCARDIA [None]
  - DYSPNOEA [None]
  - ANXIETY [None]
  - RASH GENERALISED [None]
  - BLOOD PRESSURE INCREASED [None]
